FAERS Safety Report 6055251-X (Version None)
Quarter: 2009Q1

REPORT INFORMATION
  Report Type: 
  Country: None (occurrence: None)
  Receive Date: 20090128
  Receipt Date: 20090120
  Transmission Date: 20090719
  Serious: Yes (Hospitalization)
  Sender: FDA-Public Use
  Company Number: JP-ASTRAZENECA-2008AP00650

PATIENT
  Age: 47 Year
  Sex: Female
  Weight: 45 kg

DRUGS (3)
  1. OMEPRAL [Suspect]
     Indication: HELICOBACTER INFECTION
     Route: 048
     Dates: start: 20071121, end: 20071127
  2. PASETOCIN [Suspect]
     Indication: HELICOBACTER INFECTION
     Route: 048
     Dates: start: 20071121, end: 20071127
  3. KLARICID [Suspect]
     Indication: HELICOBACTER INFECTION
     Route: 048
     Dates: start: 20071121, end: 20071127

REACTIONS (1)
  - OCULOMUCOCUTANEOUS SYNDROME [None]
